FAERS Safety Report 20521189 (Version 3)
Quarter: 2022Q2

REPORT INFORMATION
  Report Type: Spontaneous
  Country: FR (occurrence: FR)
  Receive Date: 20220226
  Receipt Date: 20220620
  Transmission Date: 20220721
  Serious: Yes (Congenital Anomaly, Other)
  Sender: FDA-Public Use
  Company Number: None

PATIENT
  Sex: Male
  Weight: 2.01 kg

DRUGS (9)
  1. PANTOPRAZOLE [Suspect]
     Active Substance: PANTOPRAZOLE
     Indication: Foetal exposure during pregnancy
     Dosage: MATERNAL EXPOSURE 20 MG, QD
     Route: 064
     Dates: start: 20191202, end: 202001
  2. RAMIPRIL [Suspect]
     Active Substance: RAMIPRIL
     Indication: Foetal exposure during pregnancy
     Dosage: MATERNAL EXPOSURE 4 MG, QD
     Route: 064
     Dates: start: 20191202, end: 202001
  3. ETHAMBUTOL HYDROCHLORIDE [Suspect]
     Active Substance: ETHAMBUTOL HYDROCHLORIDE
     Indication: Foetal exposure during pregnancy
     Dosage: MATERNAL EXPOSURE 750 MILLIGRAM, QD
     Route: 064
     Dates: start: 20191202, end: 202002
  4. CLARITHROMYCIN [Suspect]
     Active Substance: CLARITHROMYCIN
     Indication: Foetal exposure during pregnancy
     Dosage: MATERNAL EXPOSURE 500 MILLIGRAM, QD
     Route: 064
     Dates: start: 20191202, end: 202002
  5. TRUVADA [Suspect]
     Active Substance: EMTRICITABINE\TENOFOVIR DISOPROXIL FUMARATE
     Indication: Foetal exposure during pregnancy
     Dosage: 1 DOSAGE FORM, QD (MATERNAL EXPOSURE)
     Route: 065
     Dates: start: 20191202, end: 20200803
  6. TRUVADA [Suspect]
     Active Substance: EMTRICITABINE\TENOFOVIR DISOPROXIL FUMARATE
     Dosage: 445 MG/DAY
     Route: 064
     Dates: start: 20191202, end: 20200803
  7. FLUCONAZOLE [Suspect]
     Active Substance: FLUCONAZOLE
     Indication: Foetal exposure during pregnancy
     Dosage: MATERNAL EXPOSURE 600 MILLIGRAM, QD
     Route: 064
     Dates: start: 20191202, end: 202001
  8. ATOVAQUONE [Suspect]
     Active Substance: ATOVAQUONE
     Indication: Foetal exposure during pregnancy
     Dosage: MATERNAL EXPOSURE 1500 MILLIGRAM, QD, STRENGTH: 750 MG/5 ML
     Route: 064
     Dates: start: 20191202, end: 202001
  9. ISENTRESS [Suspect]
     Active Substance: RALTEGRAVIR POTASSIUM
     Indication: Foetal exposure during pregnancy
     Dosage: MATERNAL EXPOSURE 800 MG/DAY
     Route: 064
     Dates: start: 20191202, end: 20200803

REACTIONS (3)
  - Phalangeal hypoplasia [Not Recovered/Not Resolved]
  - Congenital foot malformation [Not Recovered/Not Resolved]
  - Foetal exposure during pregnancy [Unknown]

NARRATIVE: CASE EVENT DATE: 20191202
